FAERS Safety Report 21311163 (Version 1)
Quarter: 2022Q3

REPORT INFORMATION
  Report Type: Spontaneous
  Country: US (occurrence: None)
  Receive Date: 20220909
  Receipt Date: 20220909
  Transmission Date: 20221026
  Serious: No
  Sender: FDA-Public Use
  Company Number: US-ARIS GLOBAL-202201-0138

PATIENT
  Age: 82 Year
  Sex: Female

DRUGS (3)
  1. OXERVATE [Suspect]
     Active Substance: CENEGERMIN-BKBJ
     Indication: Hypoaesthesia eye
     Route: 047
     Dates: start: 20220121
  2. ALLERGY EYE [Concomitant]
     Active Substance: KETOTIFEN FUMARATE
     Dosage: 0.025-0.3%
  3. RETAINE MGD [Concomitant]
     Active Substance: LIGHT MINERAL OIL\MINERAL OIL
     Dosage: 0.5%-0.5%

REACTIONS (5)
  - Wrong technique in product usage process [Unknown]
  - Eye pain [Unknown]
  - Facial pain [Unknown]
  - Eye swelling [Unknown]
  - Headache [Unknown]

NARRATIVE: CASE EVENT DATE: 20220101
